FAERS Safety Report 13483142 (Version 3)
Quarter: 2018Q1

REPORT INFORMATION
  Report Type: Report from Study
  Country: US (occurrence: US)
  Receive Date: 20170424
  Receipt Date: 20180117
  Transmission Date: 20180508
  Serious: No
  Sender: FDA-Public Use
  Company Number: US-AMGEN-USASL2017051841

PATIENT
  Age: 53 Year
  Sex: Female

DRUGS (2)
  1. REPATHA [Suspect]
     Active Substance: EVOLOCUMAB
     Indication: HYPERCHOLESTEROLAEMIA
     Dosage: 140 MG, Q2WK
     Route: 065
  2. REPATHA [Suspect]
     Active Substance: EVOLOCUMAB
     Indication: BLOOD TRIGLYCERIDES INCREASED
     Dosage: 140 MG, Q3WK
     Route: 065

REACTIONS (5)
  - Oropharyngeal pain [Not Recovered/Not Resolved]
  - Mobility decreased [Unknown]
  - Arthralgia [Unknown]
  - Fatigue [Unknown]
  - Adverse event [Unknown]
